FAERS Safety Report 7892527-5 (Version None)
Quarter: 2011Q4

REPORT INFORMATION
  Report Type: 
  Country: None (occurrence: None)
  Receive Date: 20111104
  Receipt Date: 20111101
  Transmission Date: 20120403
  Serious: Yes (Death, Other)
  Sender: FDA-Public Use
  Company Number: SG-JNJFOC-20111100513

PATIENT
  Age: 84 Year
  Sex: Female

DRUGS (30)
  1. DOXORUBICIN HCL [Suspect]
     Route: 042
  2. CYCLOPHOSPHAMIDE [Suspect]
     Route: 065
  3. VINCRISTINE [Suspect]
     Route: 065
  4. PREDNISONE [Suspect]
     Route: 065
  5. DOXORUBICIN HCL [Suspect]
     Route: 042
  6. CYCLOPHOSPHAMIDE [Suspect]
     Route: 065
  7. VINCRISTINE [Suspect]
     Route: 065
  8. VINCRISTINE [Suspect]
     Route: 065
  9. RITUXIMAB [Suspect]
     Indication: DIFFUSE LARGE B-CELL LYMPHOMA
     Route: 065
  10. RITUXIMAB [Suspect]
     Route: 065
  11. RITUXIMAB [Suspect]
     Route: 065
  12. RITUXIMAB [Suspect]
     Route: 065
  13. CYCLOPHOSPHAMIDE [Suspect]
     Indication: DIFFUSE LARGE B-CELL LYMPHOMA
     Route: 065
  14. CYCLOPHOSPHAMIDE [Suspect]
     Route: 065
  15. PREDNISONE [Suspect]
     Indication: DIFFUSE LARGE B-CELL LYMPHOMA
     Route: 065
  16. PREDNISONE [Suspect]
     Route: 065
  17. PREDNISONE [Suspect]
     Route: 065
  18. CYCLOPHOSPHAMIDE [Suspect]
     Route: 065
  19. PREDNISONE [Suspect]
     Route: 065
  20. DOXORUBICIN HCL [Suspect]
     Indication: DIFFUSE LARGE B-CELL LYMPHOMA
     Route: 042
  21. CYCLOPHOSPHAMIDE [Suspect]
     Route: 065
  22. PREDNISONE [Suspect]
     Route: 065
  23. DOXORUBICIN HCL [Suspect]
     Route: 042
  24. RITUXIMAB [Suspect]
     Route: 065
  25. RITUXIMAB [Suspect]
     Route: 065
  26. VINCRISTINE [Suspect]
     Route: 065
  27. DOXORUBICIN HCL [Suspect]
     Route: 042
  28. DOXORUBICIN HCL [Suspect]
     Route: 042
  29. VINCRISTINE [Suspect]
     Route: 065
  30. VINCRISTINE [Suspect]
     Indication: DIFFUSE LARGE B-CELL LYMPHOMA
     Route: 065

REACTIONS (1)
  - HEPATITIS B [None]
